FAERS Safety Report 15256640 (Version 1)
Quarter: 2018Q3

REPORT INFORMATION
  Report Type: Spontaneous
  Country: US (occurrence: US)
  Receive Date: 20180718
  Receipt Date: 20180718
  Transmission Date: 20181010
  Serious: Yes (Disabling)
  Sender: FDA-Public Use
  Company Number: None

PATIENT
  Age: 60 Year
  Sex: Female
  Weight: 45.45 kg

DRUGS (1)
  1. CIPROFLOXACIN 500MG TAB [Suspect]
     Active Substance: CIPROFLOXACIN
     Indication: SINUSITIS
     Dosage: ?          QUANTITY:28 TABLET(S);?
     Route: 048
     Dates: start: 20171018, end: 20171020

REACTIONS (12)
  - Depressed level of consciousness [None]
  - Insomnia [None]
  - Blood pressure decreased [None]
  - Neuropathy peripheral [None]
  - Hypoaesthesia [None]
  - Arthralgia [None]
  - Dry eye [None]
  - Tinnitus [None]
  - Ligament pain [None]
  - Anxiety [None]
  - Muscle atrophy [None]
  - Weight decreased [None]

NARRATIVE: CASE EVENT DATE: 20171018
